FAERS Safety Report 8538839-3 (Version None)
Quarter: 2012Q3

REPORT INFORMATION
  Report Type: 
  Country: None (occurrence: None)
  Receive Date: 20120711
  Receipt Date: 20120626
  Transmission Date: 20120928
  Serious: Yes (Hospitalization)
  Sender: FDA-Public Use
  Company Number: 2012PROUSA01591

PATIENT
  Age: 64 Year
  Sex: Male
  Weight: 91.2 kg

DRUGS (6)
  1. PROVENGE [Suspect]
     Indication: PROSTATE CANCER METASTATIC
     Dosage: 250 ML, SINGLE, INTRAVENOUS
     Route: 042
     Dates: start: 20120220, end: 20120220
  2. ADDERALL 10 [Concomitant]
  3. OXYCODONE HCL [Concomitant]
  4. PREDNISONE TAB [Concomitant]
  5. PRILOSEC [Concomitant]
  6. ZOLOFT [Concomitant]

REACTIONS (7)
  - SCROTAL OEDEMA [None]
  - OEDEMA PERIPHERAL [None]
  - WEIGHT INCREASED [None]
  - MICROCYTIC ANAEMIA [None]
  - HYPOKALAEMIA [None]
  - CONSTIPATION [None]
  - RENAL FAILURE ACUTE [None]
